FAERS Safety Report 8809805 (Version 1)
Quarter: 2012Q4

REPORT INFORMATION
  Report Type: 
  Country: US (occurrence: US)
  Receive Date: 20120926
  Receipt Date: 20120926
  Transmission Date: 20130627
  Serious: Yes (Disabling, Other)
  Sender: FDA-Public Use
  Company Number: US-ABBOTT-12P-163-0980445-00

PATIENT
  Sex: Male

DRUGS (1)
  1. HUMIRA [Suspect]
     Indication: RHEUMATOID ARTHRITIS
     Dates: start: 200310

REACTIONS (25)
  - Blindness [Not Recovered/Not Resolved]
  - Visual impairment [Not Recovered/Not Resolved]
  - Upper limb fracture [Unknown]
  - Renal failure acute [Unknown]
  - Concussion [Unknown]
  - Infection [Unknown]
  - Malaise [Unknown]
  - Gait disturbance [Unknown]
  - Balance disorder [Unknown]
  - Fall [Unknown]
  - Gait disturbance [Unknown]
  - Optic neuritis [Unknown]
  - Multiple sclerosis [Unknown]
  - Demyelination [Unknown]
  - Rheumatoid arthritis [Unknown]
  - Headache [Unknown]
  - Dizziness [Unknown]
  - Strabismus [Unknown]
  - Fall [Unknown]
  - Open fracture [Unknown]
  - Impaired healing [Unknown]
  - Renal injury [Unknown]
  - Renal failure acute [Unknown]
  - Concussion [Unknown]
  - Disability [Unknown]
